FAERS Safety Report 7957660-8 (Version None)
Quarter: 2011Q4

REPORT INFORMATION
  Report Type: 
  Country: None (occurrence: None)
  Receive Date: 20111205
  Receipt Date: 20111123
  Transmission Date: 20120403
  Serious: Yes (Other)
  Sender: FDA-Public Use
  Company Number: PHHY2011AT103006

PATIENT
  Age: 25 Year
  Sex: Male

DRUGS (2)
  1. CLOZAPINE [Suspect]
     Indication: SCHIZOPHRENIA, PARANOID TYPE
     Dosage: 100 MG, UNK
  2. ABILIFY [Concomitant]
     Dosage: 25 MG, UNK

REACTIONS (1)
  - EOSINOPHIL COUNT DECREASED [None]
